FAERS Safety Report 7000298-X (Version None)
Quarter: 2010Q3

REPORT INFORMATION
  Report Type: 
  Country: None (occurrence: None)
  Receive Date: 20100920
  Receipt Date: 20100720
  Transmission Date: 20110219
  Serious: No
  Sender: FDA-Public Use
  Company Number: US-ASTRAZENECA-2010SE34008

PATIENT
  Age: 88 Year
  Sex: Female
  Weight: 59 kg

DRUGS (8)
  1. SEROQUEL [Suspect]
     Indication: AGITATION
     Route: 048
     Dates: start: 20090101
  2. SEROQUEL [Suspect]
     Route: 048
     Dates: start: 20090101
  3. NAMENDA [Concomitant]
  4. ARICEPT [Concomitant]
  5. LISINOPRIL [Concomitant]
  6. POTASSIUM [Concomitant]
  7. VERAPAMIL [Concomitant]
  8. NAPROXEN [Concomitant]

REACTIONS (1)
  - THERAPEUTIC RESPONSE UNEXPECTED [None]
